FAERS Safety Report 7795874-0 (Version None)
Quarter: 2011Q4

REPORT INFORMATION
  Report Type: 
  Country: None (occurrence: None)
  Receive Date: 20111004
  Receipt Date: 20110923
  Transmission Date: 20120403
  Serious: Yes (Other)
  Sender: FDA-Public Use
  Company Number: US-BAYER-2010-003140

PATIENT
  Age: 44 Year
  Sex: Female
  Weight: 104 kg

DRUGS (15)
  1. DROSPIRENONE AND ETHINYL ESTRADIOL [Suspect]
     Indication: PREMENSTRUAL SYNDROME
  2. NORMODYNE [Concomitant]
     Indication: HYPERTENSION
     Dosage: 200 MG, UNK
     Dates: start: 19860101, end: 20100101
  3. OXCARBAZEPINE [Concomitant]
     Dosage: 150 MG, UNK
     Dates: start: 20081015
  4. HYDROCHLOROTHIAZIDE [Concomitant]
     Dosage: 25 MG, UNK
     Dates: start: 20060101, end: 20090101
  5. YASMIN [Suspect]
     Indication: PREMENSTRUAL SYNDROME
  6. SPIRONOLACTONE [Concomitant]
     Dosage: 50 MG, UNK
     Dates: start: 20050101
  7. LISINOPRIL [Concomitant]
     Dosage: UNK
     Dates: start: 20080101
  8. DROSPIRENONE AND ETHINYL ESTRADIOL [Suspect]
     Indication: CONTRACEPTION
     Dosage: UNK
     Route: 048
     Dates: start: 20031001, end: 20091001
  9. CYMBALTA [Concomitant]
     Dosage: 30 MG, UNK
     Dates: start: 20070101, end: 20080101
  10. METFORMIN HCL [Concomitant]
     Indication: GLUCOSE TOLERANCE IMPAIRED
     Dosage: UNK
     Dates: start: 20050101
  11. CLONAZEPAM [Concomitant]
     Dosage: 1 MG, UNK
     Dates: start: 20070101, end: 20080101
  12. TRAZODONE HYDROCHLORIDE [Concomitant]
     Dosage: 100 MG, UNK
     Dates: start: 20060101, end: 20090101
  13. AMLODIPINE [Concomitant]
     Dosage: 5 MG, UNK
     Dates: start: 20080101, end: 20100101
  14. YASMIN [Suspect]
     Indication: CONTRACEPTION
     Dosage: UNK
     Route: 048
     Dates: start: 20031001, end: 20091001
  15. CIPROFLOXACIN [Concomitant]
     Dosage: 500 MG, UNK
     Dates: start: 20081014

REACTIONS (4)
  - CHOLECYSTITIS CHRONIC [None]
  - CHOLELITHIASIS [None]
  - INJURY [None]
  - PAIN [None]
